FAERS Safety Report 12859442 (Version 1)
Quarter: 2016Q4

REPORT INFORMATION
  Report Type: Spontaneous
  Country: ZA (occurrence: ZA)
  Receive Date: 20161018
  Receipt Date: 20161018
  Transmission Date: 20170207
  Serious: Yes (Other)
  Sender: FDA-Public Use
  Company Number: ZA-JNJFOC-20161010962

PATIENT
  Sex: Male

DRUGS (1)
  1. REVELLEX [Suspect]
     Active Substance: INFLIXIMAB
     Indication: ANKYLOSING SPONDYLITIS
     Dosage: THE PATIENT HAD INDUCTION DOSE AND MAINTENANCE DOSE AND ONCE IN EVERY 8 WEEKS.
     Route: 042

REACTIONS (2)
  - Tuberculosis [Unknown]
  - Unevaluable event [Unknown]
